FAERS Safety Report 9256862 (Version 3)
Quarter: 2013Q2

REPORT INFORMATION
  Report Type: Spontaneous
  Country: US (occurrence: None)
  Receive Date: 20130423
  Receipt Date: 20130531
  Transmission Date: 20140414
  Serious: Yes (Other)
  Sender: FDA-Public Use
  Company Number: AUR-APL-2013-03223

PATIENT
  Sex: Female

DRUGS (12)
  1. GABAPENTIN [Suspect]
     Indication: PAIN IN EXTREMITY
     Dosage: 2 DOAGE FORMS (1 DOSAGE FORMS, 2 IN 1 D), ORAL
     Route: 048
     Dates: start: 201106
  2. HYDROCHLOROTHIAZIDE (HYDROCHLOROTHIAZIDE) [Concomitant]
  3. ATENOLOL (ATENOLOL) [Concomitant]
  4. POTASSIUM CHLORIDE (POTASSIUM CHLORIDE) [Concomitant]
  5. ZETIA (EZETIMIBE) [Concomitant]
  6. VITAMIN D (ERGOCACLIFEROL) [Concomitant]
  7. VITAMIN C [Concomitant]
  8. PRILOSEC [Concomitant]
  9. RANITIDINE (RANITIDINE) [Concomitant]
  10. RESTATSIS (CICLOSPORIN) [Concomitant]
  11. TYLENOL (PARACETAMOL) [Concomitant]
  12. ADVIL (MEFENAMIC ACID) [Concomitant]

REACTIONS (1)
  - Thrombocytopenia [None]
